FAERS Safety Report 10704787 (Version 2)
Quarter: 2014Q4

REPORT INFORMATION
  Report Type: Other
  Country: IT (occurrence: IT)
  Receive Date: 20141116
  Receipt Date: 20141116
  Transmission Date: 20150529
  Serious: Yes (Hospitalization, Other)
  Sender: FDA-Public Use
  Company Number: IT-APOTEX-2014AP005582

PATIENT
  Age: 43 Year
  Sex: Female

DRUGS (4)
  1. EN [Suspect]
     Active Substance: DELORAZEPAM
     Indication: SUICIDE ATTEMPT
     Dosage: UNK
     Route: 048
     Dates: start: 20141029, end: 20141029
  2. SEROQUEL [Concomitant]
     Active Substance: QUETIAPINE FUMARATE
     Indication: PRODUCT USED FOR UNKNOWN INDICATION
     Dosage: UNK
     Route: 065
  3. DEPAKENE [Suspect]
     Active Substance: VALPROIC ACID
     Indication: SUICIDE ATTEMPT
     Dosage: UNK
     Route: 048
     Dates: start: 20141029, end: 20141029
  4. PAROXETINE [Suspect]
     Active Substance: PAROXETINE\PAROXETINE HYDROCHLORIDE
     Indication: SUICIDE ATTEMPT
     Dosage: UNK
     Route: 048
     Dates: start: 20141029, end: 20141029

REACTIONS (3)
  - Sopor [Recovering/Resolving]
  - Drug abuse [Recovering/Resolving]
  - Suicide attempt [Recovering/Resolving]

NARRATIVE: CASE EVENT DATE: 20141029
